FAERS Safety Report 15602033 (Version 2)
Quarter: 2019Q1

REPORT INFORMATION
  Report Type: Spontaneous
  Country: US (occurrence: US)
  Receive Date: 20181109
  Receipt Date: 20190206
  Transmission Date: 20190417
  Serious: No
  Sender: FDA-Public Use
  Company Number: US-TEVA-2018-US-971526

PATIENT
  Age: 71 Year
  Sex: Female

DRUGS (3)
  1. ACTAVIS CLONAZEPAM TABLET [Suspect]
     Active Substance: CLONAZEPAM
     Indication: ANXIETY
     Route: 065
  2. ACTAVIS CLONAZEPAM TABLET [Suspect]
     Active Substance: CLONAZEPAM
     Indication: SLEEP DISORDER
     Route: 065
  3. ACTAVIS CLONAZEPAM TABLET [Suspect]
     Active Substance: CLONAZEPAM
     Indication: PANIC DISORDER

REACTIONS (2)
  - Product substitution issue [Unknown]
  - Drug ineffective [Unknown]
